FAERS Safety Report 5877515-2 (Version None)
Quarter: 2008Q3

REPORT INFORMATION
  Report Type: 
  Country: None (occurrence: None)
  Receive Date: 20080909
  Receipt Date: 20080904
  Transmission Date: 20090109
  Serious: Yes (Hospitalization)
  Sender: FDA-Public Use
  Company Number: 2008SP018148

PATIENT
  Age: 54 Year
  Sex: Male

DRUGS (2)
  1. PEG-INTRON [Suspect]
     Indication: HEPATITIS C
     Dosage: 150 MCG
  2. RIBAVIRIN [Suspect]
     Indication: HEPATITIS C
     Dosage: PO
     Route: 048

REACTIONS (6)
  - AMMONIA INCREASED [None]
  - AMNESIA [None]
  - CONFUSIONAL STATE [None]
  - DISORIENTATION [None]
  - INJECTION SITE ERYTHEMA [None]
  - INJECTION SITE PAIN [None]
